FAERS Safety Report 16678140 (Version 7)
Quarter: 2021Q1

REPORT INFORMATION
  Report Type: Spontaneous
  Country: US (occurrence: US)
  Receive Date: 20190807
  Receipt Date: 20210216
  Transmission Date: 20210419
  Serious: Yes (Other)
  Sender: FDA-Public Use
  Company Number: US-PFIZER INC-2019334277

PATIENT
  Age: 68 Year
  Sex: Female
  Weight: 50 kg

DRUGS (5)
  1. XELJANZ XR [Suspect]
     Active Substance: TOFACITINIB CITRATE
     Indication: ARTHRITIS
     Dosage: 11 MG, 1X/DAY
     Dates: start: 2017
  2. ALEVE [Concomitant]
     Active Substance: NAPROXEN SODIUM
     Dosage: 220 MG, 1X/DAY
     Dates: start: 2010
  3. CALCIUM [Concomitant]
     Active Substance: CALCIUM
     Dosage: 1200 MG, 1X/DAY
  4. CITIZAC [Concomitant]
     Dosage: 1200 MG, 1X/DAY
     Dates: start: 2017
  5. ONE A DAY ? WOMENS [Concomitant]
     Dosage: UNK
     Dates: start: 2015

REACTIONS (4)
  - Dementia [Unknown]
  - Malaise [Recovered/Resolved]
  - Limb discomfort [Unknown]
  - Hypoacusis [Unknown]
